FAERS Safety Report 16243945 (Version 1)
Quarter: 2019Q2

REPORT INFORMATION
  Report Type: Spontaneous
  Country: US (occurrence: US)
  Receive Date: 20190322
  Receipt Date: 20190322
  Transmission Date: 20190711
  Serious: Yes (Life-Threatening)
  Sender: FDA-Public Use
  Company Number: None

PATIENT
  Age: 65 Year
  Sex: Male
  Weight: 127.46 kg

DRUGS (9)
  1. TRULICITY [Suspect]
     Active Substance: DULAGLUTIDE
     Indication: TYPE 2 DIABETES MELLITUS
     Dosage: ?          QUANTITY:0.75MG/0.5ML;?
     Route: 058
     Dates: start: 20170831, end: 20190126
  2. ST JUDE DEFIBRILLATOR [Concomitant]
  3. METFORMIN [Concomitant]
     Active Substance: METFORMIN HYDROCHLORIDE
  4. LASIX [Concomitant]
     Active Substance: FUROSEMIDE
  5. GLYPRIDE [Concomitant]
     Active Substance: GLIMEPIRIDE
  6. ZANTAC [Concomitant]
     Active Substance: RANITIDINE HYDROCHLORIDE
  7. PACEMAKER [Concomitant]
  8. SOTALOL. [Concomitant]
     Active Substance: SOTALOL
  9. TYLENOL WITH CODEINE [Concomitant]
     Active Substance: ACETAMINOPHEN\CODEINE PHOSPHATE

REACTIONS (12)
  - Vomiting [None]
  - Feeding disorder [None]
  - Musculoskeletal disorder [None]
  - Hyperhidrosis [None]
  - Movement disorder [None]
  - Arthropathy [None]
  - Fall [None]
  - Nausea [None]
  - Asthenia [None]
  - Limb injury [None]
  - Malaise [None]
  - Abdominal pain [None]

NARRATIVE: CASE EVENT DATE: 201811
